FAERS Safety Report 16844461 (Version 1)
Quarter: 2019Q3

REPORT INFORMATION
  Report Type: Spontaneous
  Country: AU (occurrence: AU)
  Receive Date: 20190924
  Receipt Date: 20190924
  Transmission Date: 20191005
  Serious: Yes (Life-Threatening, Hospitalization, Other)
  Sender: FDA-Public Use
  Company Number: AU-AMGEN-AUSSP2019156002

PATIENT
  Age: 73 Year
  Sex: Female

DRUGS (15)
  1. AZITHROMYCIN ANHYDROUS. [Concomitant]
     Active Substance: AZITHROMYCIN ANHYDROUS
     Indication: LOWER RESPIRATORY TRACT INFECTION
  2. MEROPENEM. [Concomitant]
     Active Substance: MEROPENEM
     Indication: LOWER RESPIRATORY TRACT INFECTION
  3. CEFTAZIDIME. [Concomitant]
     Active Substance: CEFTAZIDIME
     Indication: BURKHOLDERIA CEPACIA COMPLEX INFECTION
     Dosage: 2 GRAM, BID
  4. TOBRAMYCIN. [Concomitant]
     Active Substance: TOBRAMYCIN
     Indication: BURKHOLDERIA CEPACIA COMPLEX INFECTION
     Dosage: 160 MILLIGRAM, BID
     Route: 045
  5. FILGRASTIM [Suspect]
     Active Substance: FILGRASTIM
     Indication: HAEMOPHAGOCYTIC LYMPHOHISTIOCYTOSIS
     Dosage: 300 MICROGRAM  ALTERNATE DAYS
     Route: 065
  6. SULFAMETHOXAZOLE AND TRIMETHOPRIM [Concomitant]
     Active Substance: SULFAMETHOXAZOLE\TRIMETHOPRIM
     Indication: BURKHOLDERIA CEPACIA COMPLEX INFECTION
     Dosage: 5 + 25 MGLKG , QID
     Route: 042
  7. PIPERACILLIN AND TAZOBACTAM [Concomitant]
     Active Substance: PIPERACILLIN SODIUM\TAZOBACTAM SODIUM
     Indication: ORGANISING PNEUMONIA
  8. VORICONAZOLE. [Concomitant]
     Active Substance: VORICONAZOLE
     Indication: BURKHOLDERIA CEPACIA COMPLEX INFECTION
     Dosage: 300 MILLIGRAM, BID
     Route: 042
  9. AZITHROMYCIN ANHYDROUS. [Concomitant]
     Active Substance: AZITHROMYCIN ANHYDROUS
     Indication: ORGANISING PNEUMONIA
  10. DOXYCYCLIN [DOXYCYCLINE HYDROCHLORIDE] [Concomitant]
     Indication: LOWER RESPIRATORY TRACT INFECTION
  11. PREDNISONE. [Concomitant]
     Active Substance: PREDNISONE
     Indication: ORGANISING PNEUMONIA
     Dosage: 15 MILLIGRAM, QD
  12. MEROPENEM. [Concomitant]
     Active Substance: MEROPENEM
     Indication: ORGANISING PNEUMONIA
  13. CICLOSPORIN [Concomitant]
     Active Substance: CYCLOSPORINE
     Indication: ORGANISING PNEUMONIA
     Dosage: 1.5 MILLIGRAM/KILOGRAM, QD (ADJUSTED BASED ON TROUGH AND 2-HOUR POST-DOSING SERUM LEVELS)
  14. DOXYCYCLIN [DOXYCYCLINE HYDROCHLORIDE] [Concomitant]
     Indication: ORGANISING PNEUMONIA
  15. PIPERACILLIN AND TAZOBACTAM [Concomitant]
     Active Substance: PIPERACILLIN SODIUM\TAZOBACTAM SODIUM
     Indication: LOWER RESPIRATORY TRACT INFECTION

REACTIONS (2)
  - Septic shock [Recovered/Resolved]
  - Off label use [Unknown]
